FAERS Safety Report 14954821 (Version 1)
Quarter: 2018Q2

REPORT INFORMATION
  Report Type: Spontaneous
  Country: ES (occurrence: ES)
  Receive Date: 20180531
  Receipt Date: 20180531
  Transmission Date: 20180711
  Serious: Yes (Other)
  Sender: FDA-Public Use
  Company Number: ES-TEVA-2018-ES-898400

PATIENT
  Age: 69 Year
  Sex: Female
  Weight: 64 kg

DRUGS (9)
  1. MYCOSTATIN 100.000 UI/ML SUSPENSION ORAL , 1 FRASCO DE 60 ML [Concomitant]
     Route: 048
  2. PARACETAMOL (12A) [Concomitant]
     Active Substance: ACETAMINOPHEN
     Route: 048
  3. PAROXETINA (2586A) [Suspect]
     Active Substance: PAROXETINE
     Indication: DEPRESSION
     Dosage: 20 MILLIGRAM DAILY;
     Route: 048
     Dates: start: 2018, end: 20180301
  4. ATORVASTATINA (7400A) [Concomitant]
     Active Substance: ATORVASTATIN
     Dosage: 10 MILLIGRAM DAILY;
     Route: 048
  5. DIAZEPAM (730A) [Concomitant]
     Active Substance: DIAZEPAM
     Dosage: 5 MILLIGRAM DAILY;
     Route: 048
  6. AVAMYS 27,5 MICROGRAMOS/PULVERIZACION, SUSPENSION PARA PULVERIZACION N [Concomitant]
     Dosage: 110 MICROGRAM DAILY;
     Route: 045
  7. TAMSULOSINA (2751A) [Concomitant]
     Dosage: .4 MILLIGRAM DAILY;
     Route: 048
  8. COLPOTROFIN 10 MG/G CREMA VAGINAL , 1 TUBO DE 30 G [Concomitant]
     Route: 067
  9. RIVOTRIL 0,5 MG COMPRIMIDOS , 60 COMPRIMIDOS [Concomitant]
     Route: 048

REACTIONS (2)
  - Condition aggravated [Recovered/Resolved]
  - Urinary retention [Recovered/Resolved]

NARRATIVE: CASE EVENT DATE: 20180301
